FAERS Safety Report 6016630-X (Version None)
Quarter: 2008Q4

REPORT INFORMATION
  Report Type: 
  Country: None (occurrence: None)
  Receive Date: 20081222
  Receipt Date: 20081215
  Transmission Date: 20090506
  Serious: Yes (Death, Other)
  Sender: FDA-Public Use
  Company Number: PHHY2008JP23035

PATIENT
  Sex: Female
  Weight: 32 kg

DRUGS (7)
  1. DIOVAN [Suspect]
     Indication: HYPERTENSION
     Dosage: 80 MG, QD
     Route: 048
     Dates: start: 20080826, end: 20080909
  2. LASIX [Concomitant]
     Dosage: 80 MG/DAY
     Route: 048
     Dates: start: 20080823, end: 20080909
  3. LASIX [Concomitant]
     Dosage: 60 MG, UNK
     Route: 042
     Dates: start: 20080908, end: 20080909
  4. EPLERENONE (SELARA) [Concomitant]
     Indication: HYPERTENSION
     Dosage: 50 MG/DAY
     Route: 048
     Dates: start: 20080826, end: 20080909
  5. TANADOPA [Concomitant]
     Dosage: 3 G/DAY
     Route: 048
     Dates: start: 20080822, end: 20080909
  6. BLOPRESS [Concomitant]
     Indication: HYPERTENSION
     Dosage: 4 MG, UNK
     Route: 048
     Dates: start: 20080903, end: 20080909
  7. SALOBEL [Concomitant]
     Dosage: 100 MG, UNK
     Route: 048
     Dates: start: 20080903, end: 20080909

REACTIONS (7)
  - CARDIAC ARREST [None]
  - CARDIAC HYPERTROPHY [None]
  - DISEASE PROGRESSION [None]
  - HYPERURICAEMIA [None]
  - HYPOALBUMINAEMIA [None]
  - RENAL FAILURE [None]
  - RESPIRATORY ARREST [None]
